FAERS Safety Report 9163449 (Version 1)
Quarter: 2013Q1

REPORT INFORMATION
  Report Type: Spontaneous
  Country: CN (occurrence: CN)
  Receive Date: 20130314
  Receipt Date: 20130314
  Transmission Date: 20140127
  Serious: Yes (Life-Threatening, Hospitalization)
  Sender: FDA-Public Use
  Company Number: CN-NOVOPROD-372410

PATIENT
  Age: 76 Year
  Sex: Male

DRUGS (2)
  1. NOVOMIX 30 PENFILL [Suspect]
     Indication: TYPE 2 DIABETES MELLITUS
     Dosage: 32 U 15 MIN BEFORE BREAKFAST AND 24 U 15 MIN BEFORE SUPPER
     Route: 058
  2. GLUCOBAY [Concomitant]
     Indication: TYPE 2 DIABETES MELLITUS
     Dosage: 50 MG WITH LUNCH
     Route: 048

REACTIONS (1)
  - Epilepsy [Recovered/Resolved]
